FAERS Safety Report 18616878 (Version 1)
Quarter: 2020Q4

REPORT INFORMATION
  Report Type: Spontaneous
  Country: NL (occurrence: NL)
  Receive Date: 20201215
  Receipt Date: 20201215
  Transmission Date: 20210114
  Serious: Yes (Hospitalization, Other)
  Sender: FDA-Public Use
  Company Number: NL-AUROBINDO-AUR-APL-2020-060417

PATIENT
  Sex: Female

DRUGS (4)
  1. PAROXETIN FILM-COATED TABLET 20MG [Suspect]
     Active Substance: PAROXETINE
     Indication: DEPRESSION
     Dosage: 1 X PER DAY 1 TABLET
     Route: 065
     Dates: start: 20201028, end: 20201124
  2. OXAZEPAM. [Concomitant]
     Active Substance: OXAZEPAM
     Indication: PRODUCT USED FOR UNKNOWN INDICATION
     Dosage: TABLET, 10 MG (MILLIGRAM)
     Route: 065
  3. DROSPIRENONE;ETHINYLESTRADIOL [Concomitant]
     Active Substance: DROSPIRENONE\ETHINYL ESTRADIOL
     Indication: PRODUCT USED FOR UNKNOWN INDICATION
     Dosage: COATED TABLET, 30 ?G (MICROGRAM) / 3 MG (MILLIGRAM)
     Route: 065
  4. ISOTRETINO?NE 20 MG CAPSULE, SOFT [Suspect]
     Active Substance: ISOTRETINOIN
     Indication: ACNE
     Dosage: 1X PER DAY 2 CAPSULES. DOSAGE VARIED BETWEEN 1 OR 2 CAPSULES PER DAY
     Route: 065
     Dates: start: 20201028

REACTIONS (1)
  - Serotonin syndrome [Recovering/Resolving]
